FAERS Safety Report 5999893-6 (Version None)
Quarter: 2008Q4

REPORT INFORMATION
  Report Type: 
  Country: None (occurrence: None)
  Receive Date: 20081215
  Receipt Date: 20081203
  Transmission Date: 20090506
  Serious: Yes (Other)
  Sender: FDA-Public Use
  Company Number: PHEH2008US10789

PATIENT
  Sex: Female

DRUGS (1)
  1. FEMARA [Suspect]
     Dosage: UNK
     Dates: start: 20081107, end: 20081119

REACTIONS (4)
  - ARTHRALGIA [None]
  - DEPRESSION [None]
  - LOSS OF LIBIDO [None]
  - NIGHT SWEATS [None]
